FAERS Safety Report 17912446 (Version 1)
Quarter: 2020Q2

REPORT INFORMATION
  Report Type: Spontaneous
  Country: US (occurrence: US)
  Receive Date: 20200618
  Receipt Date: 20200618
  Transmission Date: 20200714
  Serious: Yes (Hospitalization)
  Sender: FDA-Public Use
  Company Number: None

PATIENT
  Age: 51 Year
  Sex: Female

DRUGS (5)
  1. METOPROLOL. [Concomitant]
     Active Substance: METOPROLOL
  2. KEPPRA [Concomitant]
     Active Substance: LEVETIRACETAM
  3. DEXAMETHASONE. [Concomitant]
     Active Substance: DEXAMETHASONE
  4. TEMOZOLOMIDE. [Suspect]
     Active Substance: TEMOZOLOMIDE
     Indication: BRAIN NEOPLASM MALIGNANT
     Route: 048
  5. LORAZEPAM. [Concomitant]
     Active Substance: LORAZEPAM

REACTIONS (1)
  - Platelet count decreased [None]
